FAERS Safety Report 5779069-8 (Version None)
Quarter: 2008Q2

REPORT INFORMATION
  Report Type: 
  Country: None (occurrence: None)
  Receive Date: 20080613
  Receipt Date: 20071129
  Transmission Date: 20081010
  Serious: Yes (Other)
  Sender: FDA-Public Use
  Company Number: PHEH2007US15340

PATIENT
  Sex: Male

DRUGS (2)
  1. EXELON [Suspect]
  2. NAMENDA [Suspect]

REACTIONS (3)
  - DYSURIA [None]
  - HALLUCINATION [None]
  - HYPERTENSION [None]
